FAERS Safety Report 14546851 (Version 2)
Quarter: 2018Q1

REPORT INFORMATION
  Report Type: Spontaneous
  Country: US (occurrence: US)
  Receive Date: 20180219
  Receipt Date: 20180227
  Transmission Date: 20180509
  Serious: No
  Sender: FDA-Public Use
  Company Number: US-PFIZER INC-2018008963

PATIENT
  Age: 81 Year
  Sex: Female
  Weight: 57 kg

DRUGS (3)
  1. LETROZOLE. [Suspect]
     Active Substance: LETROZOLE
     Indication: BREAST CANCER METASTATIC
     Dosage: UNK
  2. IBRANCE [Suspect]
     Active Substance: PALBOCICLIB
     Indication: BREAST CANCER METASTATIC
     Dosage: 125 MG, UNK
  3. IBRANCE [Suspect]
     Active Substance: PALBOCICLIB
     Dosage: 100 MG, UNK

REACTIONS (4)
  - Condition aggravated [Recovering/Resolving]
  - Neoplasm progression [Unknown]
  - Nausea [Recovering/Resolving]
  - Eating disorder [Recovering/Resolving]
